APPROVED DRUG PRODUCT: PONATINIB HYDROCHLORIDE
Active Ingredient: PONATINIB HYDROCHLORIDE
Strength: EQ 15MG BASE
Dosage Form/Route: TABLET;ORAL
Application: A215893 | Product #001
Applicant: APOTEX INC
Approved: Jul 14, 2023 | RLD: No | RS: No | Type: DISCN